FAERS Safety Report 11958394 (Version 4)
Quarter: 2016Q3

REPORT INFORMATION
  Report Type: Report from Study
  Country: CA (occurrence: CA)
  Receive Date: 20160126
  Receipt Date: 20160908
  Transmission Date: 20161109
  Serious: Yes (Other)
  Sender: FDA-Public Use
  Company Number: CA-ROCHE-1285679

PATIENT
  Age: 43 Year
  Sex: Female
  Weight: 90.7 kg

DRUGS (11)
  1. COLOSTRUM [Concomitant]
  2. RAMIPRIL. [Concomitant]
     Active Substance: RAMIPRIL
  3. LANTUS [Concomitant]
     Active Substance: INSULIN GLARGINE
  4. RITUXAN [Suspect]
     Active Substance: RITUXIMAB
     Indication: PEMPHIGUS
     Dosage: DAY 1
     Route: 042
     Dates: start: 20131001
  5. CRESTOR [Concomitant]
     Active Substance: ROSUVASTATIN CALCIUM
  6. RITUXAN [Suspect]
     Active Substance: RITUXIMAB
     Dosage: DAY 15
     Route: 042
     Dates: start: 20131015
  7. RITUXAN [Suspect]
     Active Substance: RITUXIMAB
     Dosage: DAY 1
     Route: 042
     Dates: start: 20150203
  8. PREDNISONE. [Concomitant]
     Active Substance: PREDNISONE
  9. ALENDRONATE [Concomitant]
     Active Substance: ALENDRONATE SODIUM
  10. RITUXAN [Suspect]
     Active Substance: RITUXIMAB
     Dosage: DAY 15
     Route: 042
     Dates: start: 20150217
  11. JANUMET [Concomitant]
     Active Substance: METFORMIN HYDROCHLORIDE\SITAGLIPTIN PHOSPHATE

REACTIONS (13)
  - Tremor [Not Recovered/Not Resolved]
  - Urinary tract infection [Not Recovered/Not Resolved]
  - Speech disorder [Not Recovered/Not Resolved]
  - Diabetes mellitus inadequate control [Unknown]
  - Depression [Unknown]
  - Oral mucosal blistering [Unknown]
  - Erythema [Unknown]
  - Product use issue [Unknown]
  - Parkinson^s disease [Not Recovered/Not Resolved]
  - Infusion related reaction [Unknown]
  - Incontinence [Not Recovered/Not Resolved]
  - Pemphigus [Not Recovered/Not Resolved]
  - Constipation [Not Recovered/Not Resolved]

NARRATIVE: CASE EVENT DATE: 20131001
